FAERS Safety Report 18643645 (Version 1)
Quarter: 2020Q4

REPORT INFORMATION
  Report Type: Report from Study
  Country: US (occurrence: US)
  Receive Date: 20201221
  Receipt Date: 20201221
  Transmission Date: 20210114
  Serious: Yes (Other)
  Sender: FDA-Public Use
  Company Number: US-JNJFOC-20201221383

PATIENT
  Age: 24 Year
  Sex: Male

DRUGS (5)
  1. CASEIN. [Concomitant]
     Active Substance: CASEIN
  2. MIGLUSTAT. [Suspect]
     Active Substance: MIGLUSTAT
     Indication: LIPIDOSIS
     Route: 065
     Dates: start: 20200217
  3. BACTRIM [Concomitant]
     Active Substance: SULFAMETHOXAZOLE\TRIMETHOPRIM
  4. SULFACETAMIDE. [Concomitant]
     Active Substance: SULFACETAMIDE
  5. DAPTACEL [Concomitant]
     Active Substance: BORDETELLA PERTUSSIS FILAMENTOUS HEMAGGLUTININ ANTIGEN (FORMALDEHYDE INACTIVATED)\BORDETELLA PERTUSSIS FIMBRIAE 2/3 ANTIGEN\BORDETELLA PERTUSSIS PERTACTIN ANTIGEN\BORDETELLA PERTUSSIS TOXOID ANTIGEN (GLUTARALDEHYDE INACTIVATED)\CLOSTRIDIUM TETANI TOXOID ANTIGEN (FORMALDEHYDE INACTIVATED)\CORYNEBACTE

REACTIONS (1)
  - Polymyositis [Not Recovered/Not Resolved]
